FAERS Safety Report 23885593 (Version 1)
Quarter: 2024Q2

REPORT INFORMATION
  Report Type: Spontaneous
  Country: US (occurrence: US)
  Receive Date: 20240522
  Receipt Date: 20240522
  Transmission Date: 20240716
  Serious: No
  Sender: FDA-Public Use
  Company Number: US-ABBVIE-5760216

PATIENT
  Age: 15 Year
  Sex: Female
  Weight: 59 kg

DRUGS (8)
  1. LUPRON DEPOT-PED [Suspect]
     Active Substance: LEUPROLIDE ACETATE
     Indication: Gender dysphoria
     Dosage: FORM STRENGTH: 30 MILLIGRAM
     Route: 030
     Dates: start: 20210622
  2. LUPRON DEPOT-PED [Suspect]
     Active Substance: LEUPROLIDE ACETATE
     Dosage: FORM STRENGTH: 30 MILLIGRAM
     Route: 030
     Dates: start: 20240425
  3. LUPRON DEPOT-PED [Suspect]
     Active Substance: LEUPROLIDE ACETATE
     Dosage: FORM STRENGTH: 30 MILLIGRAM, LAST ADMIN DATE: 2024
     Route: 030
     Dates: start: 20240125
  4. TESTOSTERONE [Concomitant]
     Active Substance: TESTOSTERONE
     Indication: Gender dysphoria
  5. STRATTERA [Concomitant]
     Active Substance: ATOMOXETINE HYDROCHLORIDE
     Indication: Product used for unknown indication
  6. LEXAPRO [Concomitant]
     Active Substance: ESCITALOPRAM OXALATE
     Indication: Product used for unknown indication
     Dosage: 20 MILLIGRAM
  7. HYDROCORTISONE [Concomitant]
     Active Substance: HYDROCORTISONE
     Indication: Rash
  8. CLARITIN [Concomitant]
     Active Substance: LORATADINE
     Indication: Rash

REACTIONS (5)
  - Drug eruption [Not Recovered/Not Resolved]
  - Off label use [Not Recovered/Not Resolved]
  - Dermatitis contact [Recovered/Resolved]
  - White blood cell count decreased [Unknown]
  - Rash [Recovered/Resolved]

NARRATIVE: CASE EVENT DATE: 20240210
